FAERS Safety Report 16622377 (Version 1)
Quarter: 2019Q3

REPORT INFORMATION
  Report Type: Spontaneous
  Country: JP (occurrence: JP)
  Receive Date: 20190724
  Receipt Date: 20190724
  Transmission Date: 20191004
  Serious: Yes (Life-Threatening, Hospitalization)
  Sender: FDA-Public Use
  Company Number: JP-NOVAST LABORATORIES LTD.-2019NOV000014

PATIENT
  Age: 66 Year
  Sex: Male
  Weight: 62 kg

DRUGS (2)
  1. QUETIAPINE. [Suspect]
     Active Substance: QUETIAPINE
     Indication: DELIRIUM
     Dosage: 12.5 MILLIGRAM
     Route: 065
     Dates: start: 201707, end: 201708
  2. QUETIAPINE. [Suspect]
     Active Substance: QUETIAPINE
     Dosage: 25 MILLIGRAM
     Route: 065
     Dates: start: 201708

REACTIONS (2)
  - Intestinal ischaemia [Recovering/Resolving]
  - Diabetic ketoacidosis [Recovering/Resolving]
